FAERS Safety Report 23533444 (Version 2)
Quarter: 2024Q3

REPORT INFORMATION
  Report Type: Report from Study
  Country: NL (occurrence: NL)
  Receive Date: 20240216
  Receipt Date: 20240822
  Transmission Date: 20241017
  Serious: Yes (Death, Hospitalization, Other)
  Sender: VERITY PHARMACEUTICALS
  Company Number: NL-VER-202400017

PATIENT
  Age: 67 Year
  Sex: Male

DRUGS (3)
  1. TRIPTORELIN PAMOATE [Suspect]
     Active Substance: TRIPTORELIN PAMOATE
     Indication: Prostate cancer
     Dosage: PAMORELIN DEPOT INJPDR 22.5MG SOLV 2ML (1ST) ZINR: 15533212
     Route: 030
     Dates: start: 20230821, end: 20230821
  2. TRIPTORELIN PAMOATE [Suspect]
     Active Substance: TRIPTORELIN PAMOATE
     Indication: Prostate cancer
     Dosage: PAMORELIN DEPOT INJPDR 22.5MG SOLV 2ML (1ST) ZINR: 15533212
     Route: 030
     Dates: start: 20240214, end: 20240214
  3. TRIPTORELIN PAMOATE [Suspect]
     Active Substance: TRIPTORELIN PAMOATE
     Indication: Prostate cancer
     Dosage: PAMORELIN DEPOT INJPDR 22.5MG SOLV 2ML (1ST) ZINR: 15533212
     Route: 030
     Dates: start: 20220216, end: 20220216

REACTIONS (2)
  - Arm amputation [Unknown]
  - Death [Fatal]

NARRATIVE: CASE EVENT DATE: 20240214
